FAERS Safety Report 7792362-2 (Version None)
Quarter: 2011Q4

REPORT INFORMATION
  Report Type: 
  Country: None (occurrence: None)
  Receive Date: 20111003
  Receipt Date: 20050106
  Transmission Date: 20120403
  Serious: Yes (Other)
  Sender: FDA-Public Use
  Company Number: US-US-EMD SERONO, INC.-220011M03USA

PATIENT
  Sex: Male
  Weight: 64.41 kg

DRUGS (5)
  1. METFORMIN HCL [Concomitant]
     Dates: start: 20011126
  2. SYNTHYROID (LEVOTHYROXINE) [Concomitant]
     Dates: start: 20001221
  3. SAIZEN [Suspect]
     Indication: GROWTH HORMONE DEFICIENCY
     Route: 058
     Dates: start: 20010927, end: 20030910
  4. DDAVP [Concomitant]
     Dates: start: 20001221
  5. CORTEF [Concomitant]
     Dates: start: 20001221

REACTIONS (1)
  - CRANIOPHARYNGIOMA [None]
